FAERS Safety Report 21024918 (Version 1)
Quarter: 2022Q2

REPORT INFORMATION
  Report Type: Spontaneous
  Country: US (occurrence: US)
  Receive Date: 20220629
  Receipt Date: 20220629
  Transmission Date: 20220721
  Serious: No
  Sender: FDA-Public Use
  Company Number: US-TEVA-2022-US-2048954

PATIENT

DRUGS (1)
  1. ATORVASTATIN [Suspect]
     Active Substance: ATORVASTATIN
     Indication: Product used for unknown indication
     Route: 065

REACTIONS (6)
  - Muscular weakness [Unknown]
  - Muscle fatigue [Unknown]
  - Feeling jittery [Unknown]
  - Nervousness [Unknown]
  - Fatigue [Unknown]
  - Loss of personal independence in daily activities [Unknown]
